FAERS Safety Report 18619604 (Version 1)
Quarter: 2020Q4

REPORT INFORMATION
  Report Type: Spontaneous
  Country: JP (occurrence: JP)
  Receive Date: 20201215
  Receipt Date: 20201215
  Transmission Date: 20210114
  Serious: Yes (Hospitalization)
  Sender: FDA-Public Use
  Company Number: JP-ASTRAZENECA-2019SE86579

PATIENT
  Age: 43 Year
  Sex: Female

DRUGS (1)
  1. LYNPARZA [Suspect]
     Active Substance: OLAPARIB
     Indication: OVARIAN CANCER RECURRENT
     Route: 048
     Dates: start: 20190425, end: 20190808

REACTIONS (4)
  - C-reactive protein increased [Unknown]
  - Cholangitis [Recovered/Resolved]
  - Abdominal pain lower [Unknown]
  - Flank pain [Unknown]

NARRATIVE: CASE EVENT DATE: 20190808
